FAERS Safety Report 12488800 (Version 1)
Quarter: 2016Q2

REPORT INFORMATION
  Report Type: Spontaneous
  Country: US (occurrence: US)
  Receive Date: 20160622
  Receipt Date: 20160622
  Transmission Date: 20160815
  Serious: No
  Sender: FDA-Public Use
  Company Number: US-ACTELION-A-NJ2016-137637

PATIENT
  Age: 62 Year
  Sex: Female
  Weight: 57 kg

DRUGS (13)
  1. ADCIRCA [Suspect]
     Active Substance: TADALAFIL
     Indication: PULMONARY HYPERTENSION
     Route: 065
  2. ASPIRIN. [Concomitant]
     Active Substance: ASPIRIN
  3. LETAIRIS [Suspect]
     Active Substance: AMBRISENTAN
     Indication: PULMONARY HYPERTENSION
     Dosage: 10 MG, QD
     Route: 065
     Dates: start: 20151216
  4. PLAVIX [Concomitant]
     Active Substance: CLOPIDOGREL BISULFATE
  5. PANTOPRAZOLE [Concomitant]
     Active Substance: PANTOPRAZOLE SODIUM
  6. EVENING PRIMROSE OIL [Concomitant]
     Active Substance: EVENING PRIMROSE OIL
  7. MELATONIN [Concomitant]
     Active Substance: MELATONIN
  8. CHOLECALCIFEROL [Concomitant]
     Active Substance: CHOLECALCIFEROL
  9. UPTRAVI [Suspect]
     Active Substance: SELEXIPAG
     Indication: PULMONARY HYPERTENSION
     Dosage: UNK MCG, UNK
     Route: 048
  10. ATORVASTATIN [Concomitant]
     Active Substance: ATORVASTATIN
  11. METOPROLOL TARTRATE. [Concomitant]
     Active Substance: METOPROLOL TARTRATE
  12. THYROID [Concomitant]
     Active Substance: LEVOTHYROXINE\LIOTHYRONINE
  13. LISINOPRIL. [Concomitant]
     Active Substance: LISINOPRIL

REACTIONS (4)
  - Pain in extremity [Unknown]
  - Fluid retention [Unknown]
  - Dyspepsia [Unknown]
  - Diarrhoea [Unknown]

NARRATIVE: CASE EVENT DATE: 20160518
